FAERS Safety Report 11908980 (Version 1)
Quarter: 2016Q1

REPORT INFORMATION
  Report Type: Not Available
  Country: GB (occurrence: GB)
  Receive Date: 20160111
  Receipt Date: 20160111
  Transmission Date: 20160526
  Serious: Yes (Other)
  Sender: FDA-Public Use
  Company Number: GB-ANIPHARMA-2016-UK-000001

PATIENT
  Age: 66 Year
  Sex: Female

DRUGS (2)
  1. THYROXINE [Concomitant]
     Active Substance: LEVOTHYROXINE
  2. LITHIUM CARBONATE (NON-SPECIFIC) [Suspect]
     Active Substance: LITHIUM

REACTIONS (4)
  - Nephrogenic diabetes insipidus [Unknown]
  - Renal cyst [Unknown]
  - Nephropathy [Unknown]
  - Hypercalcaemia [Unknown]
